FAERS Safety Report 4317731-4 (Version None)
Quarter: 2004Q1

REPORT INFORMATION
  Report Type: 
  Country: None (occurrence: None)
  Receive Date: 20040315
  Receipt Date: 20040302
  Transmission Date: 20041129
  Serious: Yes (Hospitalization)
  Sender: FDA-Public Use
  Company Number: PHBS2004IT02932

PATIENT
  Age: 67 Year
  Sex: Male

DRUGS (3)
  1. SANDIMMUNE [Suspect]
     Indication: PSORIASIS
     Dosage: 150 MG/D
     Route: 048
     Dates: start: 20031001, end: 20040210
  2. SIMVASTATIN [Suspect]
     Indication: HYPERCHOLESTEROLAEMIA
     Dosage: 20 MG/D
     Route: 048
     Dates: start: 20031001, end: 20040217
  3. ZYLORIC ^FAES^ [Suspect]
     Indication: HYPERURICAEMIA
     Dosage: 100 MG/D
     Route: 048
     Dates: start: 20030101, end: 20040217

REACTIONS (8)
  - ALANINE AMINOTRANSFERASE INCREASED [None]
  - ASPARTATE AMINOTRANSFERASE INCREASED [None]
  - BLOOD CREATINE PHOSPHOKINASE INCREASED [None]
  - BLOOD CREATININE INCREASED [None]
  - BLOOD UREA INCREASED [None]
  - BLOOD URIC ACID INCREASED [None]
  - RENAL FAILURE ACUTE [None]
  - RHABDOMYOLYSIS [None]
